FAERS Safety Report 13475921 (Version 2)
Quarter: 2017Q2

REPORT INFORMATION
  Report Type: Spontaneous
  Country: US (occurrence: US)
  Receive Date: 20170424
  Receipt Date: 20170526
  Transmission Date: 20170830
  Serious: Yes (Hospitalization, Congenital Anomaly)
  Sender: FDA-Public Use
  Company Number: US-ACTELION-A-NJ2017-152885

PATIENT
  Age: 30 Year
  Sex: Female

DRUGS (1)
  1. TRACLEER [Suspect]
     Active Substance: BOSENTAN
     Indication: PULMONARY ARTERIAL HYPERTENSION
     Dosage: UNK
     Route: 048

REACTIONS (2)
  - Heart rate increased [Recovered/Resolved]
  - Chest pain [Unknown]

NARRATIVE: CASE EVENT DATE: 20170412
